FAERS Safety Report 21021690 (Version 1)
Quarter: 2022Q2

REPORT INFORMATION
  Report Type: Spontaneous
  Country: US (occurrence: None)
  Receive Date: 20220628
  Receipt Date: 20220628
  Transmission Date: 20220721
  Serious: Yes (Hospitalization, Other)
  Sender: FDA-Public Use
  Company Number: None

PATIENT
  Age: 46 Year
  Sex: Female

DRUGS (1)
  1. REMICADE [Suspect]
     Active Substance: INFLIXIMAB
     Indication: Crohn^s disease
     Dosage: 100MG EVERY 8 WEEKS IV
     Route: 042
     Dates: start: 20220520

REACTIONS (6)
  - Headache [None]
  - Feeling hot [None]
  - Feeling abnormal [None]
  - Infusion related reaction [None]
  - Tremor [None]
  - Chills [None]

NARRATIVE: CASE EVENT DATE: 20220628
